FAERS Safety Report 10824776 (Version 1)
Quarter: 2015Q1

REPORT INFORMATION
  Report Type: Spontaneous
  Country: US (occurrence: US)
  Receive Date: 20150219
  Receipt Date: 20150219
  Transmission Date: 20150721
  Serious: Yes (Death, Other)
  Sender: FDA-Public Use
  Company Number: US-ASTRAZENECA-2015SE14806

PATIENT
  Age: 22109 Day
  Sex: Female
  Weight: 81.2 kg

DRUGS (18)
  1. ZETIA [Concomitant]
     Active Substance: EZETIMIBE
  2. ASPIRIN. [Concomitant]
     Active Substance: ASPIRIN
  3. ZOFRAN [Concomitant]
     Active Substance: ONDANSETRON HYDROCHLORIDE
  4. TAXOTERE [Concomitant]
     Active Substance: DOCETAXEL
     Dates: start: 2014
  5. OXYCONTIN [Concomitant]
     Active Substance: OXYCODONE HYDROCHLORIDE
  6. KLONOPIN [Concomitant]
     Active Substance: CLONAZEPAM
  7. TRADJENTA [Concomitant]
     Active Substance: LINAGLIPTIN
     Route: 065
     Dates: start: 20120105
  8. BYETTA [Suspect]
     Active Substance: EXENATIDE
     Dosage: 5MCG/O.O2ML
     Route: 065
     Dates: start: 20120422
  9. ENALAPRIL [Concomitant]
     Active Substance: ENALAPRIL
  10. LEVEMIR [Concomitant]
     Active Substance: INSULIN DETEMIR
  11. EFFEXOR [Concomitant]
     Active Substance: VENLAFAXINE HYDROCHLORIDE
  12. INVOKANA [Concomitant]
     Active Substance: CANAGLIFLOZIN
     Dates: start: 20130627
  13. BYETTA [Suspect]
     Active Substance: EXENATIDE
     Route: 065
     Dates: start: 201204, end: 201307
  14. LANTUS [Concomitant]
     Active Substance: INSULIN GLARGINE
     Dosage: 1OOU/ML
     Dates: start: 20120120
  15. REGLAN [Concomitant]
     Active Substance: METOCLOPRAMIDE HYDROCHLORIDE
  16. VICODIN [Concomitant]
     Active Substance: ACETAMINOPHEN\HYDROCODONE BITARTRATE
  17. METFORMIN [Concomitant]
     Active Substance: METFORMIN HYDROCHLORIDE
     Route: 065
     Dates: start: 20130116
  18. NATEGLINIDE. [Concomitant]
     Active Substance: NATEGLINIDE
     Dates: start: 20121010

REACTIONS (2)
  - Pancreatic carcinoma [Fatal]
  - Metastases to liver [Unknown]

NARRATIVE: CASE EVENT DATE: 20140114
